FAERS Safety Report 10204762 (Version 2)
Quarter: 2014Q2

REPORT INFORMATION
  Report Type: Report from Study
  Country: US (occurrence: US)
  Receive Date: 20140529
  Receipt Date: 20140623
  Transmission Date: 20141212
  Serious: No
  Sender: FDA-Public Use
  Company Number: US-ACTELION-A-NJ2014-099558

PATIENT
  Age: 57 Year
  Sex: Male

DRUGS (5)
  1. VENTAVIS [Suspect]
     Indication: PULMONARY ARTERIAL HYPERTENSION
     Dosage: 5 MCG, 9/DAILY
     Route: 055
     Dates: start: 20140508
  2. VENTAVIS [Suspect]
     Dosage: 2.5 MCG, UNK
     Route: 055
     Dates: start: 20140502
  3. FLOLAN [Concomitant]
  4. COUMADIN [Concomitant]
  5. ADCIRCA [Concomitant]

REACTIONS (1)
  - Palpitations [Unknown]
